FAERS Safety Report 7819320-3 (Version None)
Quarter: 2011Q4

REPORT INFORMATION
  Report Type: 
  Country: None (occurrence: None)
  Receive Date: 20111018
  Receipt Date: 20101018
  Transmission Date: 20120403
  Serious: No
  Sender: FDA-Public Use
  Company Number: US-ASTRAZENECA-2010SE47512

PATIENT
  Age: 54 Year
  Sex: Female
  Weight: 54 kg

DRUGS (6)
  1. VENTOLIN [Concomitant]
     Dosage: PRN
  2. SYMBICORT [Suspect]
     Indication: BRONCHITIS CHRONIC
     Dosage: 160/4.5 UG, 2 PUFFS, TWICE A DAY
     Route: 055
     Dates: start: 20101007
  3. NASONEX [Concomitant]
  4. XANAX [Concomitant]
     Dosage: 1/2 HS
  5. CLARITIN [Concomitant]
  6. SYMBICORT [Suspect]
     Indication: ASTHMA
     Dosage: 160/4.5 UG, 2 PUFFS, TWICE A DAY
     Route: 055
     Dates: start: 20101007

REACTIONS (4)
  - PALPITATIONS [None]
  - DYSPNOEA [None]
  - SINUSITIS [None]
  - ANXIETY [None]
